FAERS Safety Report 5747597-7 (Version None)
Quarter: 2008Q2

REPORT INFORMATION
  Report Type: 
  Country: None (occurrence: None)
  Receive Date: 20080523
  Receipt Date: 20080523
  Transmission Date: 20081010
  Serious: Yes (Life-Threatening, Hospitalization, Disabling, Other)
  Sender: FDA-Public Use
  Company Number: None

PATIENT
  Sex: Female
  Weight: 90.7194 kg

DRUGS (2)
  1. HEPARIN [Suspect]
     Indication: COLOSTOMY
     Dates: start: 20060619, end: 20060704
  2. HEPARIN [Suspect]
     Indication: COLOSTOMY
     Dates: start: 20061113, end: 20061205

REACTIONS (2)
  - DRUG HYPERSENSITIVITY [None]
  - INJURY [None]
